FAERS Safety Report 9680690 (Version 2)
Quarter: 2013Q4

REPORT INFORMATION
  Report Type: Spontaneous
  Country: FR (occurrence: FR)
  Receive Date: 20131111
  Receipt Date: 20131111
  Transmission Date: 20140711
  Serious: Yes (Hospitalization)
  Sender: FDA-Public Use
  Company Number: FR-JNJFOC-20131010451

PATIENT
  Age: 24 Year
  Sex: Female
  Weight: 75 kg

DRUGS (1)
  1. XEPLION [Suspect]
     Indication: PRODUCT USED FOR UNKNOWN INDICATION
     Route: 030
     Dates: start: 20130920

REACTIONS (6)
  - Brain oedema [Recovering/Resolving]
  - Haematoma [Recovering/Resolving]
  - Visual field defect [Recovering/Resolving]
  - Headache [Recovering/Resolving]
  - Blood prolactin increased [Recovered/Resolved]
  - Intraocular pressure increased [Unknown]
